FAERS Safety Report 5809636-4 (Version None)
Quarter: 2008Q3

REPORT INFORMATION
  Report Type: 
  Country: None (occurrence: None)
  Receive Date: 20080711
  Receipt Date: 20080711
  Transmission Date: 20090109
  Serious: Yes (Other)
  Sender: FDA-Public Use
  Company Number: None

PATIENT
  Age: 50 Year
  Sex: Male
  Weight: 77.1115 kg

DRUGS (1)
  1. MELOXICAM [Suspect]
     Indication: ROTATOR CUFF SYNDROME
     Dosage: 1 DAILY PO
     Route: 048
     Dates: start: 20080624, end: 20080708

REACTIONS (5)
  - FEELING HOT [None]
  - HEAT RASH [None]
  - HOT FLUSH [None]
  - RASH [None]
  - SKIN WARM [None]
